FAERS Safety Report 21572642 (Version 4)
Quarter: 2022Q4

REPORT INFORMATION
  Report Type: Spontaneous
  Country: HN (occurrence: HN)
  Receive Date: 20221109
  Receipt Date: 20221220
  Transmission Date: 20230113
  Serious: No
  Sender: FDA-Public Use
  Company Number: HN-PFIZER INC-PV202200093791

PATIENT
  Age: 14 Year
  Sex: Female

DRUGS (4)
  1. GENOTROPIN [Suspect]
     Active Substance: SOMATROPIN
     Dosage: 2.2 MG, 1X/DAY
     Dates: start: 20211230
  2. GENOTROPIN [Suspect]
     Active Substance: SOMATROPIN
     Dosage: 2 MG, 1X/DAY (AT NIGHT)
  3. GENOTROPIN [Suspect]
     Active Substance: SOMATROPIN
     Dosage: 1 MG, 1X/DAY (AT NIGHT)
  4. GENOTROPIN [Suspect]
     Active Substance: SOMATROPIN
     Dosage: 1 MG, 1X/DAY (BEDTIME)

REACTIONS (6)
  - Device issue [Unknown]
  - Drug dose omission by device [Unknown]
  - Device mechanical issue [Unknown]
  - Device leakage [Unknown]
  - Wrong technique in product usage process [Unknown]
  - Product prescribing error [Unknown]

NARRATIVE: CASE EVENT DATE: 20221027
